FAERS Safety Report 6462221-6 (Version None)
Quarter: 2009Q4

REPORT INFORMATION
  Report Type: 
  Country: None (occurrence: None)
  Receive Date: 20091130
  Receipt Date: 20091119
  Transmission Date: 20100525
  Serious: Yes (Life-Threatening)
  Sender: FDA-Public Use
  Company Number: US-TEVA-215692USA

PATIENT
  Sex: Male

DRUGS (1)
  1. FLUCONAZOLE 50 MG, 100 MG, 150 MG + 200 MG TABLETS [Suspect]
     Indication: PNEUMONIA
     Dates: start: 20080101

REACTIONS (2)
  - BACTERIAL TEST POSITIVE [None]
  - DRUG INEFFECTIVE [None]
